FAERS Safety Report 6688062-2 (Version None)
Quarter: 2010Q2

REPORT INFORMATION
  Report Type: 
  Country: None (occurrence: None)
  Receive Date: 20100420
  Receipt Date: 20100411
  Transmission Date: 20101027
  Serious: Yes (Death, Life-Threatening)
  Sender: FDA-Public Use
  Company Number: JP-BAYER-200811624BYL

PATIENT
  Age: 69 Year
  Sex: Male
  Weight: 62 kg

DRUGS (3)
  1. NEXAVAR [Suspect]
     Indication: RENAL CELL CARCINOMA
     Dosage: TOTAL DAILY DOSE: 800 MG  UNIT DOSE: 200 MG
     Route: 048
     Dates: start: 20080707, end: 20080710
  2. BFLUID [Concomitant]
     Indication: FLUID REPLACEMENT
     Route: 041
     Dates: start: 20080706, end: 20080709
  3. SOLITA-T3 [Concomitant]
     Indication: FLUID REPLACEMENT
     Route: 041
     Dates: start: 20080706, end: 20080709

REACTIONS (7)
  - CIRCULATORY COLLAPSE [None]
  - DECREASED APPETITE [None]
  - ELECTROLYTE IMBALANCE [None]
  - ILEUS [None]
  - RENAL CELL CARCINOMA [None]
  - RESPIRATORY FAILURE [None]
  - VOMITING [None]
